FAERS Safety Report 8287601-8 (Version None)
Quarter: 2012Q2

REPORT INFORMATION
  Report Type: 
  Country: None (occurrence: None)
  Receive Date: 20120416
  Receipt Date: 20120409
  Transmission Date: 20120825
  Serious: Yes (Hospitalization, Other)
  Sender: FDA-Public Use
  Company Number: PHHO2010DE06866

PATIENT
  Sex: Male
  Weight: 71 kg

DRUGS (3)
  1. GILENYA [Suspect]
     Dosage: 0.5MG
     Route: 048
     Dates: start: 20100304, end: 20100510
  2. COAL TAR [Concomitant]
  3. GILENYA [Suspect]
     Indication: MULTIPLE SCLEROSIS
     Dosage: 1.25MG
     Route: 048
     Dates: start: 20090216, end: 20100303

REACTIONS (15)
  - SINUS DISORDER [None]
  - OSTEOARTHRITIS [None]
  - RENAL CYST [None]
  - EXTRAVASATION [None]
  - HEPATIC CYST [None]
  - DIVERTICULUM INTESTINAL [None]
  - SPINAL OSTEOARTHRITIS [None]
  - DIFFUSE LARGE B-CELL LYMPHOMA [None]
  - LYMPHADENOPATHY [None]
  - LOCAL SWELLING [None]
  - PLEURAL CALCIFICATION [None]
  - LUNG DISORDER [None]
  - WEIGHT DECREASED [None]
  - ASTHENIA [None]
  - HEPATOMEGALY [None]
